FAERS Safety Report 20704112 (Version 2)
Quarter: 2022Q3

REPORT INFORMATION
  Report Type: Spontaneous
  Country: US (occurrence: US)
  Receive Date: 20220413
  Receipt Date: 20220713
  Transmission Date: 20221026
  Serious: Yes (Other)
  Sender: FDA-Public Use
  Company Number: US-ALLERGAN-2210827US

PATIENT
  Sex: Male

DRUGS (8)
  1. LEXAPRO [Suspect]
     Active Substance: ESCITALOPRAM OXALATE
     Indication: Depression
     Dosage: 5 UNK
     Dates: start: 202006, end: 20220219
  2. LEXAPRO [Suspect]
     Active Substance: ESCITALOPRAM OXALATE
     Indication: Anxiety
     Dosage: 10 MG, QD
     Dates: start: 202006, end: 202202
  3. LEXAPRO [Suspect]
     Active Substance: ESCITALOPRAM OXALATE
     Indication: Bipolar disorder
  4. DEPAKOTE [Suspect]
     Active Substance: DIVALPROEX SODIUM
     Indication: Bipolar disorder
     Dosage: 250 MG, QD
     Route: 048
     Dates: end: 20220226
  5. DEPAKOTE [Suspect]
     Active Substance: DIVALPROEX SODIUM
     Dosage: 500 MG, QD
     Route: 048
  6. DEPAKOTE [Suspect]
     Active Substance: DIVALPROEX SODIUM
     Dosage: 750 MG, QD
     Route: 048
  7. MODERNA COVID-19 VACCINE [Concomitant]
     Active Substance: ELASOMERAN
     Indication: COVID-19 immunisation
     Dosage: UNK, SINGLE
     Route: 030
     Dates: start: 2021, end: 2021
  8. MODERNA COVID-19 VACCINE [Concomitant]
     Active Substance: ELASOMERAN
     Dosage: UNK, SINGLE
     Route: 030
     Dates: start: 2021, end: 2021

REACTIONS (15)
  - Post-traumatic stress disorder [Not Recovered/Not Resolved]
  - Withdrawal syndrome [Unknown]
  - Suicidal ideation [Unknown]
  - Hypometabolism [Not Recovered/Not Resolved]
  - Off label use [Unknown]
  - Thought blocking [Unknown]
  - Crying [Unknown]
  - Total bile acids increased [Not Recovered/Not Resolved]
  - Depressed mood [Unknown]
  - Tremor [Recovered/Resolved]
  - Alopecia [Not Recovered/Not Resolved]
  - Abdominal pain upper [Not Recovered/Not Resolved]
  - Dizziness [Not Recovered/Not Resolved]
  - Anger [Unknown]
  - Irritability [Unknown]

NARRATIVE: CASE EVENT DATE: 20200101
